FAERS Safety Report 9379471 (Version 2)
Quarter: 2013Q4

REPORT INFORMATION
  Report Type: Spontaneous
  Country: DK (occurrence: GB)
  Receive Date: 20130702
  Receipt Date: 20131113
  Transmission Date: 20140711
  Serious: Yes (Other)
  Sender: FDA-Public Use
  Company Number: GB-FRI-1000046355

PATIENT
  Age: 38 Year
  Sex: Female
  Weight: 67 kg

DRUGS (2)
  1. CITALOPRAM [Suspect]
     Indication: ANXIETY
     Dosage: 10 MG
     Route: 048
     Dates: start: 20130412
  2. CITALOPRAM [Suspect]
     Dosage: 20 MG
     Route: 048

REACTIONS (2)
  - Trismus [Recovered/Resolved]
  - Bruxism [Unknown]
